FAERS Safety Report 5495570-9 (Version None)
Quarter: 2007Q4

REPORT INFORMATION
  Report Type: 
  Country: None (occurrence: None)
  Receive Date: 20071025
  Receipt Date: 20071016
  Transmission Date: 20080405
  Serious: Yes (Disabling, Other)
  Sender: FDA-Public Use
  Company Number: PHFR2007GB03039

PATIENT
  Age: 73 Year
  Sex: Male

DRUGS (11)
  1. DICLOFENAC [Suspect]
     Indication: PAIN
     Dosage: 50MG
     Route: 048
     Dates: start: 20060207, end: 20060207
  2. BISOPROLOL FUMARATE [Concomitant]
     Indication: ATRIAL FIBRILLATION
     Dosage: 2.5 MG, QD
     Route: 048
  3. BUSPIRONE HCL [Concomitant]
     Indication: ANXIETY
     Dosage: 5MG
     Route: 048
  4. DEXAMETHASONE 0.5MG TAB [Concomitant]
     Indication: PAIN
     Dosage: 6 MG, QD
     Route: 048
  5. DOCUSATE [Concomitant]
     Indication: CONSTIPATION
     Dosage: 100MG
     Route: 048
  6. HALOPERIDOL [Concomitant]
     Indication: PROPHYLAXIS OF NAUSEA AND VOMITING
     Dosage: 1.5 MG, QD
     Route: 048
  7. METOCLOPRAMIDE [Concomitant]
     Indication: PROPHYLAXIS OF NAUSEA AND VOMITING
     Dosage: 10 MG, TID
     Route: 048
  8. OXYCONTIN [Concomitant]
     Indication: PAIN
     Dosage: 80 MG, BID
     Route: 048
  9. PARACETAMOL [Concomitant]
     Indication: PAIN
     Dosage: 1 G, QID
     Route: 048
  10. RABEPRAZOLE SODIUM [Concomitant]
     Indication: GASTRIC ULCER
     Dosage: 20 MG, BID
     Route: 048
  11. SENNA [Concomitant]
     Indication: CONSTIPATION
     Dosage: 15MG
     Route: 048

REACTIONS (4)
  - EYE DISORDER [None]
  - EYE SWELLING [None]
  - LACRIMATION INCREASED [None]
  - OCULAR HYPERAEMIA [None]
